FAERS Safety Report 8144486-8 (Version None)
Quarter: 2012Q1

REPORT INFORMATION
  Report Type: 
  Country: None (occurrence: None)
  Receive Date: 20120217
  Receipt Date: 20120208
  Transmission Date: 20120608
  Serious: Yes (Hospitalization)
  Sender: FDA-Public Use
  Company Number: DK-ABBOTT-12P-044-0902996-07

PATIENT
  Sex: Female

DRUGS (6)
  1. UNIKALK PLUS [Concomitant]
     Indication: INFLAMMATORY BOWEL DISEASE
     Dosage: CALCIUM 400MG + VITAMIN D 16MCG
     Dates: start: 20080422
  2. HUMIRA [Suspect]
     Route: 058
     Dates: start: 20110209
  3. HUMIRA [Suspect]
     Indication: CROHN'S DISEASE
     Route: 058
     Dates: start: 20081124, end: 20091008
  4. TRAMADOL HCL [Concomitant]
     Indication: PAIN
     Dates: start: 20090310
  5. PARACETAMOL [Concomitant]
     Indication: PAIN
     Dates: start: 20090706
  6. HUMIRA [Suspect]
     Route: 058
     Dates: start: 20091009, end: 20091111

REACTIONS (2)
  - HIDRADENITIS [None]
  - SKIN INFECTION [None]
